FAERS Safety Report 6871513-8 (Version None)
Quarter: 2010Q3

REPORT INFORMATION
  Report Type: 
  Country: None (occurrence: None)
  Receive Date: 20100723
  Receipt Date: 20100722
  Transmission Date: 20110219
  Serious: Yes (Hospitalization, Other)
  Sender: FDA-Public Use
  Company Number: US-ROXANE LABORATORIES, INC.-2010-RO-00140RO

PATIENT
  Sex: Male

DRUGS (31)
  1. METHADONE HCL [Suspect]
     Dates: start: 20091222, end: 20100110
  2. METHADONE HCL [Suspect]
  3. LORAZEPAM [Suspect]
     Dates: start: 20100115
  4. BUPRENORPHINE HYDROCHLORIDE [Suspect]
     Dates: start: 20100113, end: 20100614
  5. APIXABAN [Suspect]
     Indication: THROMBOSIS PROPHYLAXIS
     Dosage: 10 MG
     Route: 048
     Dates: start: 20091224, end: 20100119
  6. APIXABAN [Suspect]
     Dosage: 10 MG
     Route: 048
     Dates: start: 20100121
  7. PLACEBO [Suspect]
     Indication: THROMBOSIS PROPHYLAXIS
     Route: 048
     Dates: start: 20091224, end: 20100119
  8. PLACEBO [Suspect]
     Route: 048
     Dates: start: 20100121
  9. ASPIRIN [Concomitant]
     Dates: start: 20091218, end: 20100622
  10. CLOPIDOGREL BISULFATE [Concomitant]
     Dates: start: 20091219
  11. METOPROLOL SUCCINATE [Concomitant]
     Dates: end: 20100622
  12. LOSARTAN POSTASSIUM [Concomitant]
  13. SIMVASTATIN [Concomitant]
  14. OXYCODONE HCL [Concomitant]
     Dates: start: 20091219, end: 20100118
  15. ISOSORBIDE DINITRATE [Concomitant]
  16. MIRALAX [Concomitant]
  17. FORMOTEROL FUMERATE [Concomitant]
  18. ALBUTEROL [Concomitant]
     Route: 055
  19. ALBUTEROL [Concomitant]
  20. DOCUSATE SODIUM [Concomitant]
  21. MOMETASONE FUROATE [Concomitant]
  22. SELENIUM SULFIDE [Concomitant]
  23. TIOTROPIUM BROMIDE [Concomitant]
  24. PROCHLORPERAZINE [Concomitant]
  25. LASIX [Concomitant]
     Dates: start: 20100104, end: 20100106
  26. NITROGLYCERIN [Concomitant]
  27. CLONIDINE [Concomitant]
     Dates: start: 20100115
  28. GABAPENTIN [Concomitant]
     Dates: start: 20100115, end: 20100210
  29. SUBOXONE [Concomitant]
     Dates: start: 20100119, end: 20100119
  30. TRICYCLIC ANTIDEPRESSANTS [Concomitant]
     Dates: start: 20100115, end: 20100210
  31. PROTON PUMP INHIBITOR [Concomitant]

REACTIONS (2)
  - DRUG WITHDRAWAL SYNDROME [None]
  - ELECTROCARDIOGRAM QT PROLONGED [None]
